FAERS Safety Report 9502035 (Version 1)
Quarter: 2013Q3

REPORT INFORMATION
  Report Type: Spontaneous
  Country: US (occurrence: US)
  Receive Date: 20130905
  Receipt Date: 20130905
  Transmission Date: 20140515
  Serious: Yes (Hospitalization, Other)
  Sender: FDA-Public Use
  Company Number: US-COVIDIEN/TYCO HEALTHCARE/MALLINCKRODT-T201304237

PATIENT
  Sex: Female

DRUGS (3)
  1. GABLOFEN [Suspect]
     Indication: MUSCLE SPASTICITY
     Dosage: 350 MCG/DAY
     Route: 037
  2. BACLOFEN [Suspect]
     Indication: PRODUCT USED FOR UNKNOWN INDICATION
     Dosage: 120 UNK, UNK
     Route: 048
  3. BACLOFEN [Suspect]
     Dosage: 40 MG, UNK

REACTIONS (8)
  - Overdose [Unknown]
  - Respiratory depression [Unknown]
  - Loss of consciousness [Unknown]
  - Respiratory disorder [Recovered/Resolved]
  - Hypothermia [Unknown]
  - Narcolepsy [None]
  - Dizziness [Unknown]
  - Somnolence [Unknown]
